FAERS Safety Report 9334585 (Version 1)
Quarter: 2013Q2

REPORT INFORMATION
  Report Type: Spontaneous
  Country: US (occurrence: US)
  Receive Date: 20130606
  Receipt Date: 20130606
  Transmission Date: 20140414
  Serious: Yes (Hospitalization)
  Sender: FDA-Public Use
  Company Number: 2013SP001582

PATIENT
  Age: 33 Year
  Sex: Female
  Weight: 73 kg

DRUGS (9)
  1. LATUDA [Suspect]
     Indication: BIPOLAR I DISORDER
     Route: 048
     Dates: end: 20130529
  2. LATUDA [Suspect]
     Indication: BIPOLAR I DISORDER
     Route: 048
     Dates: start: 2012
  3. NEURONTIN [Concomitant]
     Indication: BIPOLAR II DISORDER
     Route: 048
  4. WELLBUTRIN [Concomitant]
     Indication: PRODUCT USED FOR UNKNOWN INDICATION
     Route: 048
  5. DEPAKOTE [Concomitant]
     Indication: PRODUCT USED FOR UNKNOWN INDICATION
     Route: 048
  6. ZANTAC [Concomitant]
     Indication: HIATUS HERNIA
     Route: 048
  7. ASPIRIN [Concomitant]
     Indication: ANTICOAGULANT THERAPY
     Route: 048
  8. CORTICOSTEROID NOS [Concomitant]
     Indication: ASTHMA
  9. RISPERDAL [Concomitant]
     Indication: PRODUCT USED FOR UNKNOWN INDICATION

REACTIONS (8)
  - Dyspnoea [Unknown]
  - Asthma [Unknown]
  - Gait disturbance [Unknown]
  - Pain in extremity [Unknown]
  - Tachycardia [Unknown]
  - Tremor [Unknown]
  - Dysarthria [Unknown]
  - Hypertension [Unknown]
